FAERS Safety Report 17468958 (Version 1)
Quarter: 2020Q1

REPORT INFORMATION
  Report Type: Spontaneous
  Country: US (occurrence: US)
  Receive Date: 20200217
  Receipt Date: 20200217
  Transmission Date: 20200409
  Serious: Yes (Other)
  Sender: FDA-Public Use
  Company Number: None

PATIENT
  Age: 8 Year
  Sex: Female
  Weight: 23.9 kg

DRUGS (1)
  1. LEVOTHYROXINE 37.5MCG [Suspect]
     Active Substance: LEVOTHYROXINE
     Indication: HYPOTHYROIDISM
     Route: 048
     Dates: start: 20180410, end: 20190227

REACTIONS (6)
  - Product substitution issue [None]
  - Spinal pain [None]
  - Arthralgia [None]
  - Fatigue [None]
  - Headache [None]
  - Therapy non-responder [None]

NARRATIVE: CASE EVENT DATE: 20190227
